FAERS Safety Report 8986784 (Version 1)
Quarter: 2012Q4

REPORT INFORMATION
  Report Type: Spontaneous
  Country: FR (occurrence: None)
  Receive Date: 20121113
  Receipt Date: 20121113
  Transmission Date: 20130627
  Serious: No
  Sender: FDA-Public Use
  Company Number: 2012SP003488

PATIENT
  Age: 45 Year
  Sex: Female

DRUGS (15)
  1. FLUOROURACIL (FLUOROURACIL) [Suspect]
     Indication: CARCINOMA EPIDERMOID
     Route: 042
     Dates: start: 20120719, end: 20120719
  2. CARBOPLATINE [Suspect]
     Indication: CARCINOMA EPIDERMOID
     Route: 042
     Dates: start: 20120719, end: 20120719
  3. ERBITUX [Suspect]
     Indication: CARCINOMA EPIDERMOID
     Route: 042
     Dates: start: 20120719, end: 20120801
  4. METHYLPREDNISOLONE [Suspect]
     Indication: DRUG USE FOR UNKNOWN INDICATION
     Route: 042
     Dates: start: 20120719, end: 20120801
  5. ZOPHREN [Suspect]
     Indication: DRUG USE FOR UNKNOWN INDICATION
     Route: 042
     Dates: start: 20120719, end: 201208
  6. INIPOMP [Concomitant]
  7. ROCEPHINE [Concomitant]
  8. CIFLOX [Concomitant]
  9. SKENAN [Concomitant]
  10. ACTISKENAN [Concomitant]
  11. DIFFU K [Concomitant]
  12. TRANSIPEG [Concomitant]
  13. IMOVANE [Concomitant]
  14. MAGNESIUM [Concomitant]
  15. FORLAX [Concomitant]

REACTIONS (4)
  - Grand mal convulsion [None]
  - Chills [None]
  - Catheter site infection [None]
  - Hypomagnesaemia [None]
